FAERS Safety Report 5228283-9 (Version None)
Quarter: 2007Q1

REPORT INFORMATION
  Report Type: 
  Country: None (occurrence: None)
  Receive Date: 20070205
  Receipt Date: 20070123
  Transmission Date: 20070707
  Serious: Yes (Other)
  Sender: FDA-Public Use
  Company Number: PHRM2007FR00624

PATIENT
  Age: 64 Year
  Sex: Male

DRUGS (3)
  1. COTAREG [Suspect]
     Indication: HYPERTENSION
     Dosage: 1 DF, QD
     Route: 048
  2. SYMBICORT [Concomitant]
     Dosage: 2 DF, QD
  3. SINGULAIR [Concomitant]

REACTIONS (3)
  - ASTHMA LATE ONSET [None]
  - ERYTHEMA [None]
  - RHINITIS [None]
